FAERS Safety Report 4615427-2 (Version None)
Quarter: 2005Q1

REPORT INFORMATION
  Report Type: 
  Country: None (occurrence: None)
  Receive Date: 20050317
  Receipt Date: 20050304
  Transmission Date: 20050727
  Serious: Yes (Hospitalization)
  Sender: FDA-Public Use
  Company Number: 2005042008

PATIENT
  Age: 76 Year
  Sex: Male
  Weight: 57.1532 kg

DRUGS (4)
  1. NEURONTIN [Suspect]
     Indication: PAIN
     Dosage: ORAL
     Route: 048
     Dates: start: 20040101
  2. OXYCODONE (OXYCODONE) [Concomitant]
  3. ZOLPIDEM TARTRATE [Concomitant]
  4. ANTIBIOTICS (ANTIBIOTICS) [Concomitant]

REACTIONS (5)
  - COMPRESSION FRACTURE [None]
  - DYSKINESIA [None]
  - HOT FLUSH [None]
  - HYPERHIDROSIS [None]
  - PROSTATIC DISORDER [None]
